FAERS Safety Report 4846334-8 (Version None)
Quarter: 2005Q4

REPORT INFORMATION
  Report Type: 
  Country: None (occurrence: None)
  Receive Date: 20051115
  Receipt Date: 20050930
  Transmission Date: 20060501
  Serious: Yes (Hospitalization)
  Sender: FDA-Public Use
  Company Number: 419919

PATIENT
  Age: 56 Year
  Sex: Male
  Weight: 74.8 kg

DRUGS (11)
  1. PEGASYS [Suspect]
     Indication: HEPATITIS C
     Dosage: 180 MCG 1 PER WEEK SUBCUTANEOUS
     Route: 058
     Dates: start: 20050903
  2. COPEGUS [Suspect]
     Indication: HEPATITIS C
     Dosage: 600 MG 2 PER DAY ORAL
     Route: 048
     Dates: start: 20050903, end: 20050924
  3. PROGRAF [Concomitant]
  4. MAGNESIUM OXIDE [Concomitant]
  5. NORVASC [Concomitant]
  6. ATENOLOL [Concomitant]
  7. CALCIUM GLUCONATE [Concomitant]
  8. ZANTAC [Concomitant]
  9. MVI (MULTIVITAMIN NOS) [Concomitant]
  10. LANTUS [Concomitant]
  11. LAMIVUDINE [Concomitant]

REACTIONS (5)
  - ANAEMIA [None]
  - ASTHENIA [None]
  - FATIGUE [None]
  - HAEMATOCHEZIA [None]
  - VOMITING [None]
